FAERS Safety Report 7424541-8 (Version None)
Quarter: 2011Q2

REPORT INFORMATION
  Report Type: 
  Country: None (occurrence: None)
  Receive Date: 20110419
  Receipt Date: 20110418
  Transmission Date: 20111010
  Serious: Yes (Other)
  Sender: FDA-Public Use
  Company Number: CH-PFIZER INC-2011084082

PATIENT
  Sex: Female

DRUGS (2)
  1. CONCERTA [Suspect]
     Dosage: 18 MG, 1X/DAY
  2. EFFEXOR [Suspect]
     Dosage: 300 MG, 1X/DAY

REACTIONS (3)
  - CARDIOVASCULAR DISORDER [None]
  - HEADACHE [None]
  - DIZZINESS [None]
